FAERS Safety Report 10415131 (Version 1)
Quarter: 2014Q2

REPORT INFORMATION
  Report Type: Spontaneous
  Country: US (occurrence: None)
  Receive Date: 20140604
  Receipt Date: 20140604
  Transmission Date: 20141212
  Serious: No
  Sender: FDA-Public Use
  Company Number: 163-POMAL-14030351

PATIENT
  Age: 88 Year
  Sex: Male
  Weight: 73.48 kg

DRUGS (14)
  1. POMALYST (POMALIDOMIDE) (3 MILLIGRAM, CAPSULES) [Suspect]
     Indication: PLASMA CELL MYELOMA
     Dosage: 21 IN 28 D
     Route: 048
     Dates: start: 20131121
  2. PROCRIT (ERYTHROPOIETIN) [Concomitant]
  3. ZOMETA (ZOLEDRONIC ACID) [Concomitant]
  4. NEUPOGEN (FILGRASTIM) [Concomitant]
  5. FLUTICASONE [Concomitant]
  6. LORATADINE [Concomitant]
  7. DEXAMETHASONE [Concomitant]
  8. MIRALAX (MACROGOL) [Concomitant]
  9. MULTIVITAMIN [Concomitant]
  10. SIMVASTATIN [Concomitant]
  11. VITAMIN B12 (CYANOCOBALAMIN) [Concomitant]
  12. COLACE (DOCUSATE SODIUM) [Concomitant]
  13. TIMOLOL [Concomitant]
  14. SENNA [Concomitant]

REACTIONS (1)
  - Adverse drug reaction [None]
